FAERS Safety Report 4653245-X (Version None)
Quarter: 2005Q2

REPORT INFORMATION
  Report Type: 
  Country: None (occurrence: None)
  Receive Date: 20050503
  Receipt Date: 20050503
  Transmission Date: 20051028
  Serious: Yes (Hospitalization)
  Sender: FDA-Public Use
  Company Number: None

PATIENT
  Age: 85 Year
  Sex: Female

DRUGS (2)
  1. BIVALIRUDIN [Suspect]
     Indication: ANGIOPLASTY
     Dosage: BOLUS-} 70 MG CONTINUING 185 MG/M2
  2. BIVALIRUDIN [Suspect]
     Indication: CHEST PAIN
     Dosage: BOLUS-} 70 MG CONTINUING 185 MG/M2

REACTIONS (1)
  - POST PROCEDURAL COMPLICATION [None]
